FAERS Safety Report 8582344-5 (Version None)
Quarter: 2012Q3

REPORT INFORMATION
  Report Type: 
  Country: None (occurrence: None)
  Receive Date: 20120809
  Receipt Date: 20120727
  Transmission Date: 20120928
  Serious: Yes (Other)
  Sender: FDA-Public Use
  Company Number: BR-ROCHE-1073081

PATIENT
  Sex: Male
  Weight: 100 kg

DRUGS (3)
  1. VALIUM [Suspect]
     Indication: DEPRESSION
     Route: 048
  2. CLONAZEPAM [Suspect]
     Indication: PRODUCT USED FOR UNKNOWN INDICATION
  3. VENLAFAXINE [Concomitant]
     Indication: DEPRESSION
     Route: 048

REACTIONS (3)
  - EYE HAEMORRHAGE [None]
  - DIARRHOEA [None]
  - SKIN EXFOLIATION [None]
